FAERS Safety Report 7225324-4 (Version None)
Quarter: 2011Q1

REPORT INFORMATION
  Report Type: 
  Country: None (occurrence: None)
  Receive Date: 20110113
  Receipt Date: 20101006
  Transmission Date: 20110831
  Serious: Yes (Hospitalization)
  Sender: FDA-Public Use
  Company Number: GB-NAPPMUNDI-GBR-2010-0007145

PATIENT
  Sex: Male

DRUGS (1)
  1. BUTRANS TRANSDERMAL PATCH [Suspect]
     Indication: PRODUCT USED FOR UNKNOWN INDICATION
     Dosage: 6 PATCH, UNK
     Route: 062

REACTIONS (1)
  - INCORRECT DOSE ADMINISTERED [None]
